FAERS Safety Report 17165944 (Version 10)
Quarter: 2023Q1

REPORT INFORMATION
  Report Type: Spontaneous
  Country: PL (occurrence: PL)
  Receive Date: 20191217
  Receipt Date: 20230310
  Transmission Date: 20230418
  Serious: Yes (Death, Life-Threatening, Hospitalization, Other)
  Sender: FDA-Public Use
  Company Number: PL-TAKEDA-2019TEU009614

PATIENT
  Age: 46 Year
  Sex: Female

DRUGS (43)
  1. AMOXICILLIN\CLAVULANIC ACID [Interacting]
     Active Substance: AMOXICILLIN\CLAVULANIC ACID
     Indication: Bacterial test positive
     Dosage: UNK
     Route: 065
  2. CEFUROXIME [Interacting]
     Active Substance: CEFUROXIME
     Indication: Urinary tract infection
     Dosage: 50 MILLIGRAM, QD
     Route: 048
  3. CEFUROXIME [Interacting]
     Active Substance: CEFUROXIME
     Indication: Bacterial infection
  4. CEFUROXIME [Interacting]
     Active Substance: CEFUROXIME
     Indication: Antibiotic therapy
  5. CEFUROXIME [Interacting]
     Active Substance: CEFUROXIME
     Indication: Bacteriuria
  6. PANTOPRAZOLE [Interacting]
     Active Substance: PANTOPRAZOLE
     Indication: Gastrooesophageal reflux disease
     Dosage: 40 MILLIGRAM, QD
     Route: 048
  7. PANTOPRAZOLE [Interacting]
     Active Substance: PANTOPRAZOLE
     Dosage: 10 MILLIGRAM, QD
     Route: 065
  8. PANTOPRAZOLE [Interacting]
     Active Substance: PANTOPRAZOLE
     Dosage: 1 DOSAGE FORM, QD
     Route: 048
  9. PANTOPRAZOLE [Suspect]
     Active Substance: PANTOPRAZOLE
     Indication: Gastrooesophageal reflux disease
     Dosage: UNK
     Route: 065
  10. PANTOPRAZOLE [Suspect]
     Active Substance: PANTOPRAZOLE
     Indication: Reflux gastritis
  11. OLANZAPINE [Interacting]
     Active Substance: OLANZAPINE
     Indication: Bipolar disorder
     Dosage: 10 MG, QD, LONG-TERM THERAPY
     Route: 048
  12. LEVOFLOXACIN [Interacting]
     Active Substance: LEVOFLOXACIN
     Indication: Bacterial infection
     Dosage: UNK
     Route: 065
  13. LEVOFLOXACIN [Interacting]
     Active Substance: LEVOFLOXACIN
     Indication: Antibiotic therapy
  14. LEVOFLOXACIN [Interacting]
     Active Substance: LEVOFLOXACIN
     Indication: Urinary tract infection
  15. LEVOFLOXACIN [Interacting]
     Active Substance: LEVOFLOXACIN
     Indication: Bacteriuria
  16. ITOPRIDE HYDROCHLORIDE [Interacting]
     Active Substance: ITOPRIDE HYDROCHLORIDE
     Indication: Gastrooesophageal reflux disease
     Dosage: 150 MILLIGRAM, QD 50 MG, TID
     Route: 048
  17. ITOPRIDE HYDROCHLORIDE [Interacting]
     Active Substance: ITOPRIDE HYDROCHLORIDE
     Indication: Bipolar disorder
     Dosage: 50 MILLIGRAM, QD
     Route: 048
  18. ITOPRIDE HYDROCHLORIDE [Interacting]
     Active Substance: ITOPRIDE HYDROCHLORIDE
     Indication: Reflux gastritis
     Dosage: 3 DOSAGE FORM, QD
     Route: 048
  19. ITOPRIDE HYDROCHLORIDE [Interacting]
     Active Substance: ITOPRIDE HYDROCHLORIDE
     Dosage: 50 MILLIGRAM, Q8H
     Route: 065
  20. NIFUROXAZIDE [Interacting]
     Active Substance: NIFUROXAZIDE
     Indication: Diarrhoea
     Dosage: UNK
     Route: 065
  21. NIFUROXAZIDE [Interacting]
     Active Substance: NIFUROXAZIDE
     Indication: Urinary tract infection
  22. NIFUROXAZIDE [Interacting]
     Active Substance: NIFUROXAZIDE
     Indication: Antibiotic therapy
  23. CIPROFLOXACIN [Interacting]
     Active Substance: CIPROFLOXACIN
     Indication: Urinary tract infection
     Dosage: UNK
     Route: 065
  24. CIPROFLOXACIN [Interacting]
     Active Substance: CIPROFLOXACIN
     Indication: Bacterial test positive
  25. CIPROFLOXACIN [Interacting]
     Active Substance: CIPROFLOXACIN
     Indication: Antibiotic therapy
  26. CIPROFLOXACIN [Interacting]
     Active Substance: CIPROFLOXACIN
     Indication: Leukocytosis
  27. CIPROFLOXACIN [Interacting]
     Active Substance: CIPROFLOXACIN
     Indication: Bacteriuria
  28. SULFAMETHOXAZOLE\TRIMETHOPRIM [Interacting]
     Active Substance: SULFAMETHOXAZOLE\TRIMETHOPRIM
     Indication: Bacterial infection
     Dosage: UNK
     Route: 065
  29. SULFAMETHOXAZOLE\TRIMETHOPRIM [Interacting]
     Active Substance: SULFAMETHOXAZOLE\TRIMETHOPRIM
     Indication: Antibiotic therapy
  30. SULFAMETHOXAZOLE\TRIMETHOPRIM [Interacting]
     Active Substance: SULFAMETHOXAZOLE\TRIMETHOPRIM
     Indication: Urinary tract infection
  31. SULFAMETHOXAZOLE\TRIMETHOPRIM [Interacting]
     Active Substance: SULFAMETHOXAZOLE\TRIMETHOPRIM
     Indication: Bacteriuria
  32. SULFAMETHOXAZOLE\TRIMETHOPRIM [Interacting]
     Active Substance: SULFAMETHOXAZOLE\TRIMETHOPRIM
     Indication: Bipolar disorder
  33. CIPROFLOXACIN [Interacting]
     Active Substance: CIPROFLOXACIN
     Indication: Antibiotic therapy
     Dosage: UNK
     Route: 065
  34. SULFAMETHOXAZOLE [Interacting]
     Active Substance: SULFAMETHOXAZOLE
     Indication: Product used for unknown indication
     Dosage: UNK
     Route: 065
  35. TRIMETHOPRIM [Interacting]
     Active Substance: TRIMETHOPRIM
     Indication: Product used for unknown indication
     Dosage: UNK
     Route: 065
  36. ARIPIPRAZOLE [Interacting]
     Active Substance: ARIPIPRAZOLE
     Indication: Bipolar disorder
     Dosage: 7.5 MILLIGRAM, QD
     Route: 048
  37. NIFUROXAZIDE [Interacting]
     Active Substance: NIFUROXAZIDE
     Indication: Abdominal pain
     Dosage: UNK
     Route: 065
  38. NIFUROXAZIDE [Interacting]
     Active Substance: NIFUROXAZIDE
     Indication: Diarrhoea
  39. NIFUROXAZIDE [Interacting]
     Active Substance: NIFUROXAZIDE
     Indication: Urinary tract infection
  40. CEFUROXIME AXETIL [Suspect]
     Active Substance: CEFUROXIME AXETIL
     Indication: Bacteriuria
     Dosage: UNK
     Route: 065
  41. CEFUROXIME AXETIL [Suspect]
     Active Substance: CEFUROXIME AXETIL
     Indication: Bacterial infection
  42. CEFUROXIME AXETIL [Suspect]
     Active Substance: CEFUROXIME AXETIL
     Indication: Antibiotic therapy
  43. ARIPIPRAZOLE [Concomitant]
     Active Substance: ARIPIPRAZOLE
     Indication: Product used for unknown indication
     Dosage: 7.5 MILLIGRAM
     Route: 065

REACTIONS (25)
  - Peritonitis [Fatal]
  - Intestinal perforation [Fatal]
  - Parosmia [Fatal]
  - Trimethylaminuria [Fatal]
  - Megacolon [Unknown]
  - Pseudomembranous colitis [Unknown]
  - Dyspepsia [Unknown]
  - Gastrooesophageal reflux disease [Unknown]
  - Clostridium difficile infection [Not Recovered/Not Resolved]
  - Drug ineffective [Unknown]
  - Pyrexia [Unknown]
  - White blood cells urine [Unknown]
  - Bacterial test positive [Unknown]
  - Breath odour [Unknown]
  - Urine odour abnormal [Unknown]
  - Oral discomfort [Unknown]
  - Potentiating drug interaction [Unknown]
  - Diarrhoea [Unknown]
  - Abdominal pain upper [Unknown]
  - Condition aggravated [Not Recovered/Not Resolved]
  - Dysbiosis [Unknown]
  - Taste disorder [Not Recovered/Not Resolved]
  - Inhibitory drug interaction [Not Recovered/Not Resolved]
  - Drug resistance [Unknown]
  - Drug interaction [Not Recovered/Not Resolved]
